FAERS Safety Report 6091833-7 (Version None)
Quarter: 2009Q1

REPORT INFORMATION
  Report Type: 
  Country: None (occurrence: None)
  Receive Date: 20090225
  Receipt Date: 20080725
  Transmission Date: 20090719
  Serious: No
  Sender: FDA-Public Use
  Company Number: A0739591A

PATIENT
  Age: 43 Year
  Sex: Female

DRUGS (6)
  1. VALTREX [Suspect]
     Dosage: 1G PER DAY
     Route: 048
     Dates: start: 20080707
  2. PRILOSEC [Concomitant]
  3. AMBIEN CR [Concomitant]
  4. LORAZEPAM [Concomitant]
  5. STEROID CREAM [Concomitant]
  6. ANTIFUNGAL CREAM [Concomitant]

REACTIONS (4)
  - HEADACHE [None]
  - JOINT STIFFNESS [None]
  - MUSCULOSKELETAL STIFFNESS [None]
  - OROPHARYNGEAL PAIN [None]
